FAERS Safety Report 7919434-3 (Version None)
Quarter: 2011Q4

REPORT INFORMATION
  Report Type: 
  Country: None (occurrence: None)
  Receive Date: 20111117
  Receipt Date: 20111107
  Transmission Date: 20120403
  Serious: Yes (Other)
  Sender: FDA-Public Use
  Company Number: GB-RANBAXY-2011R1-50315

PATIENT
  Age: 70 Year
  Sex: Female

DRUGS (3)
  1. VERAPAMIL [Suspect]
     Indication: ATRIAL FIBRILLATION
     Dosage: UNK
     Route: 065
  2. LISINOPRIL [Suspect]
     Indication: HYPERTENSION
     Dosage: UNK
     Route: 065
  3. LOSARTAN [Suspect]
     Indication: HYPERTENSION
     Dosage: UNK
     Route: 065

REACTIONS (10)
  - FIBROMYALGIA [None]
  - MUSCULOSKELETAL PAIN [None]
  - ABDOMINAL PAIN [None]
  - DECREASED APPETITE [None]
  - MUSCLE SPASMS [None]
  - URINARY INCONTINENCE [None]
  - DIARRHOEA [None]
  - ARTHRALGIA [None]
  - SLEEP DISORDER [None]
  - COUGH [None]
